FAERS Safety Report 8456101-4 (Version None)
Quarter: 2012Q2

REPORT INFORMATION
  Report Type: 
  Country: None (occurrence: None)
  Receive Date: 20120621
  Receipt Date: 20120618
  Transmission Date: 20120825
  Serious: Yes (Hospitalization, Other)
  Sender: FDA-Public Use
  Company Number: PHHY2011US38071

PATIENT
  Sex: Female
  Weight: 74.83 kg

DRUGS (2)
  1. EXJADE [Suspect]
     Indication: NEOPLASM
     Dosage: 1500 MG, QD
     Route: 048
     Dates: start: 20080709
  2. EXJADE [Suspect]
     Dosage: 750 MG, DAILY
     Route: 048
     Dates: start: 20120511, end: 20120513

REACTIONS (5)
  - HEPATIC ENZYME INCREASED [None]
  - PYREXIA [None]
  - COMPLEMENT FIXATION TEST POSITIVE [None]
  - MALAISE [None]
  - DRUG-INDUCED LIVER INJURY [None]
